FAERS Safety Report 4346084-0 (Version None)
Quarter: 2004Q1

REPORT INFORMATION
  Report Type: 
  Country: None (occurrence: None)
  Receive Date: 20040325
  Receipt Date: 20031211
  Transmission Date: 20041129
  Serious: No
  Sender: FDA-Public Use
  Company Number: USA030433708

PATIENT
  Age: 81 Year
  Sex: Female
  Weight: 52 kg

DRUGS (4)
  1. FORTEO [Suspect]
     Indication: DRUG INTOLERANCE
     Dosage: 20 UG/DAY
     Dates: start: 20030310, end: 20030915
  2. TUMS (CALCIUM CARBONATE) [Concomitant]
  3. VITAMIN D [Concomitant]
  4. MULTIVITAMIN [Concomitant]

REACTIONS (15)
  - ANOREXIA [None]
  - ARTHRALGIA [None]
  - ASTHENIA [None]
  - ASTHENOPIA [None]
  - BLEPHAROSPASM [None]
  - EYE DISCHARGE [None]
  - EYE PAIN [None]
  - EYELID OEDEMA [None]
  - FEAR [None]
  - GAIT DISTURBANCE [None]
  - HYPOAESTHESIA [None]
  - MUSCLE CRAMP [None]
  - MUSCLE RIGIDITY [None]
  - NAUSEA [None]
  - PAIN IN EXTREMITY [None]
